FAERS Safety Report 22593695 (Version 1)
Quarter: 2023Q2

REPORT INFORMATION
  Report Type: Other
  Country: US (occurrence: US)
  Receive Date: 20230613
  Receipt Date: 20230613
  Transmission Date: 20230722
  Serious: Yes (Hospitalization, Congenital Anomaly)
  Sender: FDA-Public Use
  Company Number: US-ALVOGEN-2023091660

PATIENT
  Sex: Female
  Weight: 1.965 kg

DRUGS (3)
  1. METHOTREXATE [Suspect]
     Active Substance: METHOTREXATE
     Indication: Abortion
     Dosage: AT APPROXIMATELY 7 WEEKS GESTATION
     Route: 064
  2. MISOPROSTOL [Suspect]
     Active Substance: MISOPROSTOL
     Indication: Abortion
     Route: 064
  3. MISOPROSTOL [Suspect]
     Active Substance: MISOPROSTOL
     Indication: Abortion
     Dosage: SECOND DOSE OF MISOPROSTOL APPROXIMATELY 48 H LATER
     Route: 064

REACTIONS (16)
  - Foetal methotrexate syndrome [Unknown]
  - Adactyly [Unknown]
  - Anonychia [Unknown]
  - Abnormal palmar/plantar creases [Unknown]
  - Retrognathia [Unknown]
  - Microgenia [Unknown]
  - Prominent epicanthal folds [Unknown]
  - Low birth weight baby [Recovering/Resolving]
  - Poor feeding infant [Recovering/Resolving]
  - Microtia [Unknown]
  - Brachydactyly [Unknown]
  - Polydactyly [Unknown]
  - Ectrodactyly [Unknown]
  - Craniosynostosis [Unknown]
  - Eyelid ptosis [Unknown]
  - Foetal exposure during pregnancy [Unknown]
